FAERS Safety Report 5026519-0 (Version None)
Quarter: 2006Q2

REPORT INFORMATION
  Report Type: 
  Country: None (occurrence: None)
  Receive Date: 20060613
  Receipt Date: 20060613
  Transmission Date: 20061013
  Serious: Yes (Life-Threatening)
  Sender: FDA-Public Use
  Company Number: None

PATIENT
  Sex: Male
  Weight: 3.7 kg

DRUGS (1)
  1. ACCUTANE [Suspect]
     Dosage: PO DAILY
     Route: 048
     Dates: start: 20050816

REACTIONS (7)
  - ANOMALY OF EXTERNAL EAR CONGENITAL [None]
  - COARCTATION OF THE AORTA [None]
  - DRUG EXPOSURE DURING PREGNANCY [None]
  - HEART DISEASE CONGENITAL [None]
  - MICROGRAPHIA [None]
  - PATENT DUCTUS ARTERIOSUS [None]
  - VENTRICULAR SEPTAL DEFECT [None]
